FAERS Safety Report 11754334 (Version 2)
Quarter: 2015Q4

REPORT INFORMATION
  Report Type: Spontaneous
  Country: IT (occurrence: IT)
  Receive Date: 20151119
  Receipt Date: 20151125
  Transmission Date: 20160304
  Serious: Yes (Hospitalization)
  Sender: FDA-Public Use
  Company Number: IT-SA-2015SA184773

PATIENT
  Age: 80 Year
  Sex: Male

DRUGS (8)
  1. PLAVIX [Suspect]
     Active Substance: CLOPIDOGREL BISULFATE
     Indication: THROMBOSIS PROPHYLAXIS
     Route: 048
     Dates: start: 20150101, end: 20151030
  2. PEPTAZOL [Concomitant]
     Active Substance: PANTOPRAZOLE SODIUM
     Route: 048
  3. ABSORCOL [Concomitant]
     Route: 048
  4. TORVAST [Concomitant]
     Active Substance: ATORVASTATIN
     Route: 048
  5. CARDICOR [Concomitant]
     Active Substance: BISOPROLOL
     Route: 048
  6. XARELTO [Suspect]
     Active Substance: RIVAROXABAN
     Indication: THROMBOSIS PROPHYLAXIS
     Route: 048
     Dates: start: 20150101, end: 20151030
  7. LANOXIN [Concomitant]
     Active Substance: DIGOXIN
     Route: 048
  8. LASIX [Concomitant]
     Active Substance: FUROSEMIDE
     Dosage: DOSE:2 UNIT(S)
     Route: 048

REACTIONS (3)
  - Presyncope [Unknown]
  - Melaena [Unknown]
  - Gastric haemorrhage [Unknown]

NARRATIVE: CASE EVENT DATE: 20151030
